FAERS Safety Report 20840886 (Version 1)
Quarter: 2022Q2

REPORT INFORMATION
  Report Type: Spontaneous
  Country: US (occurrence: US)
  Receive Date: 20220517
  Receipt Date: 20220517
  Transmission Date: 20220721
  Serious: No
  Sender: FDA-Public Use
  Company Number: US-PFIZER INC-202200616295

PATIENT
  Age: 87 Year
  Sex: Female
  Weight: 62.14 kg

DRUGS (2)
  1. SEPTRA [Suspect]
     Active Substance: SULFAMETHOXAZOLE\TRIMETHOPRIM
     Dosage: UNK
  2. TETRACYCLINE [Suspect]
     Active Substance: TETRACYCLINE
     Dosage: UNK

REACTIONS (1)
  - Urticaria [Unknown]
